FAERS Safety Report 6618477-X (Version None)
Quarter: 2010Q1

REPORT INFORMATION
  Report Type: 
  Country: None (occurrence: None)
  Receive Date: 20100223
  Receipt Date: 20091103
  Transmission Date: 20100710
  Serious: No
  Sender: FDA-Public Use
  Company Number: 8054135

PATIENT
  Sex: Female

DRUGS (5)
  1. CIMZIA [Suspect]
     Dosage: LAST DOSE ON 13-OCT-2009 SUBCUTANEOUS
     Route: 058
  2. IMURAN [Concomitant]
  3. PREDNISONE [Concomitant]
  4. ZANTAC [Concomitant]
  5. ALDACTONE [Concomitant]

REACTIONS (3)
  - AMNESIA [None]
  - FACE OEDEMA [None]
  - SENSITIVITY OF TEETH [None]
